FAERS Safety Report 24025926 (Version 1)
Quarter: 2024Q2

REPORT INFORMATION
  Report Type: Spontaneous
  Country: US (occurrence: US)
  Receive Date: 20240628
  Receipt Date: 20240628
  Transmission Date: 20240715
  Serious: No
  Sender: FDA-Public Use
  Company Number: US-AUROBINDO-AUR-APL-2023-079682

PATIENT
  Age: 56 Year
  Sex: Male
  Weight: 117.9 kg

DRUGS (3)
  1. AZELASTINE HYDROCHLORIDE [Suspect]
     Active Substance: AZELASTINE HYDROCHLORIDE
     Indication: Sinus congestion
     Dosage: 2 DOSAGE FORM ( 02 SPRAY PER EACH NOSTRIL, 0.1% 137 MCG PER SPRAY)
     Route: 045
     Dates: end: 20231208
  2. AZELASTINE HYDROCHLORIDE [Suspect]
     Active Substance: AZELASTINE HYDROCHLORIDE
     Indication: Hypersensitivity
  3. QUINAPRIL [Concomitant]
     Active Substance: QUINAPRIL
     Indication: Product used for unknown indication
     Dosage: 0.25 MILLIGRAM
     Route: 048

REACTIONS (10)
  - Sinus congestion [Recovered/Resolved]
  - Swelling [Recovered/Resolved]
  - Hypersensitivity [Recovered/Resolved]
  - Epistaxis [Recovered/Resolved]
  - Sinusitis [Recovered/Resolved]
  - Thermal burn [Recovered/Resolved]
  - Sinus pain [Recovered/Resolved]
  - Sinus headache [Recovered/Resolved]
  - Skin irritation [Recovered/Resolved]
  - Inflammation [Recovered/Resolved]

NARRATIVE: CASE EVENT DATE: 20231208
